FAERS Safety Report 8457779-1 (Version None)
Quarter: 2012Q2

REPORT INFORMATION
  Report Type: 
  Country: None (occurrence: None)
  Receive Date: 20120618
  Receipt Date: 20120618
  Transmission Date: 20120825
  Serious: Yes (Hospitalization)
  Sender: FDA-Public Use
  Company Number: None

PATIENT
  Sex: Male
  Weight: 91.1 kg

DRUGS (7)
  1. FLUDARABINE PHOSPHATE [Suspect]
     Dosage: 200 MG
     Dates: end: 20120304
  2. MULTI-VITAMIN [Concomitant]
  3. FELODIPINE [Concomitant]
  4. LIPITOR [Concomitant]
  5. CALCIUM AND MAGNESIUM [Concomitant]
  6. VENTOLIN [Concomitant]
  7. RITUXIMAB (MOAB C2B8 ANTI CD20 CHIMERIC) [Suspect]
     Dosage: 750 MG
     Dates: end: 20120229

REACTIONS (1)
  - PNEUMONIA [None]
